FAERS Safety Report 7062242-9 (Version None)
Quarter: 2010Q4

REPORT INFORMATION
  Report Type: 
  Country: None (occurrence: None)
  Receive Date: 20101026
  Receipt Date: 20101012
  Transmission Date: 20110411
  Serious: Yes (Hospitalization)
  Sender: FDA-Public Use
  Company Number: GB-AMGEN-GBRCT2010000112

PATIENT

DRUGS (4)
  1. ETANERCEPT [Suspect]
     Indication: RHEUMATOID ARTHRITIS
     Dosage: 25 MG, 2 TIMES/WK
     Route: 058
     Dates: start: 20040921
  2. PARACETAMOL [Concomitant]
     Dosage: UNKNOWN
  3. VOLTAREN [Concomitant]
     Dosage: UNKNOWN
  4. METHOTREXATE [Concomitant]
     Dosage: UNKNOWN
     Dates: start: 20070122

REACTIONS (1)
  - RENAL COLIC [None]
